FAERS Safety Report 9159815 (Version 2)
Quarter: 2013Q2

REPORT INFORMATION
  Report Type: Spontaneous
  Country: NZ (occurrence: NZ)
  Receive Date: 20130313
  Receipt Date: 20130506
  Transmission Date: 20140414
  Serious: Yes (Other)
  Sender: FDA-Public Use
  Company Number: NZ-ASTELLAS-2013US002677

PATIENT
  Sex: Male

DRUGS (6)
  1. PROGRAF [Suspect]
     Indication: PRODUCT USED FOR UNKNOWN INDICATION
     Dosage: UNK
     Route: 048
     Dates: start: 200112, end: 200203
  2. PROGRAF [Suspect]
     Dosage: 1 MG, BID
     Route: 048
     Dates: start: 200309
  3. PROGRAF [Suspect]
     Dosage: 1.5 MG, BID
     Route: 048
     Dates: start: 201105
  4. PROGRAF [Suspect]
     Dosage: 1 MG, BID
     Route: 048
     Dates: start: 201301
  5. MYCOPHENOLATE [Concomitant]
     Indication: PRODUCT USED FOR UNKNOWN INDICATION
     Dosage: 500 MG, TID
     Route: 048
     Dates: start: 201105
  6. MYCOPHENOLATE [Concomitant]
     Dosage: 500 MG, BID
     Route: 065
     Dates: start: 201301

REACTIONS (19)
  - Drug ineffective [Unknown]
  - Renal transplant [Unknown]
  - Faecal incontinence [Unknown]
  - Hydrocephalus [Unknown]
  - Memory impairment [Unknown]
  - Visual impairment [Unknown]
  - Migraine [Unknown]
  - Dyslexia [Unknown]
  - Spina bifida [Unknown]
  - Renal pain [Unknown]
  - Osteoporosis [Unknown]
  - Cardiomyopathy [Unknown]
  - Photophobia [Unknown]
  - Neuropathy peripheral [Unknown]
  - Kidney transplant rejection [Unknown]
  - Fall [Unknown]
  - Paraesthesia [Unknown]
  - Hypoaesthesia [Unknown]
  - Tremor [Unknown]
